FAERS Safety Report 14665109 (Version 1)
Quarter: 2018Q1

REPORT INFORMATION
  Report Type: Spontaneous
  Country: US (occurrence: US)
  Receive Date: 20180319
  Receipt Date: 20180319
  Transmission Date: 20180509
  Serious: Yes (Other)
  Sender: FDA-Public Use
  Company Number: None

PATIENT
  Age: 48 Year
  Sex: Female
  Weight: 54 kg

DRUGS (19)
  1. CLONAZEPAM. [Concomitant]
     Active Substance: CLONAZEPAM
  2. TIZANIDINE. [Concomitant]
     Active Substance: TIZANIDINE
  3. HYDROXYZINE [Concomitant]
     Active Substance: HYDROXYZINE HYDROCHLORIDE
  4. AMBIEN [Concomitant]
     Active Substance: ZOLPIDEM TARTRATE
  5. VALTREX [Concomitant]
     Active Substance: VALACYCLOVIR HYDROCHLORIDE
  6. RECLAST [Suspect]
     Active Substance: ZOLEDRONIC ACID
     Indication: OSTEOPOROSIS
     Dosage: ?          QUANTITY:1 INJECTION(S);OTHER FREQUENCY:ONCE YEARLY;?
     Route: 042
     Dates: start: 20180118, end: 20180118
  7. OMEPRAZOLE. [Concomitant]
     Active Substance: OMEPRAZOLE
  8. MARSHMALLOW ROOT [Concomitant]
  9. COLACE [Concomitant]
     Active Substance: DOCUSATE SODIUM
  10. ZOFRAN [Concomitant]
     Active Substance: ONDANSETRON HYDROCHLORIDE
  11. RITUAL ESSENTIAL WOMEN^S VITAMINS [Concomitant]
  12. ORGANIC BLUEBERRY [Concomitant]
  13. MEPERIDINE [Concomitant]
     Active Substance: MEPERIDINE
  14. POMEGRANATE [Concomitant]
     Active Substance: POMEGRANATE
  15. NUTRAFOL HAIR SKIN AND NAILS VITAMIN [Concomitant]
  16. VITAMIN D [Concomitant]
     Active Substance: CHOLECALCIFEROL
  17. CLARINEX [Concomitant]
     Active Substance: DESLORATADINE
  18. AZELASTINE. [Concomitant]
     Active Substance: AZELASTINE HYDROCHLORIDE
  19. MELATONIN [Concomitant]
     Active Substance: MELATONIN

REACTIONS (22)
  - Myalgia [None]
  - Arthralgia [None]
  - Infusion related reaction [None]
  - Musculoskeletal pain [None]
  - Urine output increased [None]
  - Diarrhoea [None]
  - Swelling face [None]
  - Eye pain [None]
  - Nausea [None]
  - Pain in extremity [None]
  - Oral pain [None]
  - Neck pain [None]
  - Migraine [None]
  - Urine output decreased [None]
  - Insomnia [None]
  - Bone pain [None]
  - Pyrexia [None]
  - Somnolence [None]
  - Fatigue [None]
  - Loss of personal independence in daily activities [None]
  - Headache [None]
  - Constipation [None]

NARRATIVE: CASE EVENT DATE: 20180119
